FAERS Safety Report 19519909 (Version 2)
Quarter: 2021Q3

REPORT INFORMATION
  Report Type: Report from Study
  Country: US (occurrence: US)
  Receive Date: 20210712
  Receipt Date: 20210715
  Transmission Date: 20211014
  Serious: Yes (Hospitalization)
  Sender: FDA-Public Use
  Company Number: US-BIOVITRUM-2021US6690

PATIENT
  Age: 15 Year
  Sex: Male

DRUGS (1)
  1. KINERET [Suspect]
     Active Substance: ANAKINRA
     Indication: STILL^S DISEASE
     Route: 058
     Dates: start: 20210618, end: 20210707

REACTIONS (4)
  - Pyrexia [Unknown]
  - Off label use [Recovered/Resolved]
  - Lymphadenitis [Unknown]
  - Infection [Unknown]

NARRATIVE: CASE EVENT DATE: 20210618
